FAERS Safety Report 8830844 (Version 1)
Quarter: 2012Q4

REPORT INFORMATION
  Report Type: 
  Country: US (occurrence: US)
  Receive Date: 20121009
  Receipt Date: 20121009
  Transmission Date: 20130627
  Serious: Yes (Other)
  Sender: FDA-Public Use
  Company Number: US-MERCK-1210USA000210

PATIENT
  Sex: Male

DRUGS (3)
  1. PEG-INTRON [Suspect]
     Indication: HEPATITIS C
     Dosage: UNK
  2. REBETOL [Suspect]
     Indication: HEPATITIS C
  3. TELAPREVIR [Concomitant]
     Indication: HEPATITIS C

REACTIONS (4)
  - Deafness unilateral [Unknown]
  - Injection site erythema [Unknown]
  - Fatigue [Unknown]
  - Depression [Unknown]
